FAERS Safety Report 22344825 (Version 1)
Quarter: 2023Q2

REPORT INFORMATION
  Report Type: Other
  Country: CA (occurrence: CA)
  Receive Date: 20230519
  Receipt Date: 20230519
  Transmission Date: 20230722
  Serious: Yes (Hospitalization, Other)
  Sender: FDA-Public Use
  Company Number: CA-CELLTRION INC.-2023CA010306

PATIENT

DRUGS (10)
  1. RITUXIMAB [Suspect]
     Active Substance: RITUXIMAB
     Indication: Diffuse large B-cell lymphoma
     Dosage: 683.0 MILLIGRAM
     Route: 042
  2. CISPLATIN [Suspect]
     Active Substance: CISPLATIN
     Indication: Diffuse large B-cell lymphoma
     Dosage: 137.0 MILLIGRAM
     Route: 042
  3. GEMCITABINE [Suspect]
     Active Substance: GEMCITABINE
     Indication: Diffuse large B-cell lymphoma
     Dosage: 1820.0 MILLIGRAM
     Route: 042
  4. ALLOPURINOL [Concomitant]
     Active Substance: ALLOPURINOL
  5. FILGRASTIM [Concomitant]
     Active Substance: FILGRASTIM
  6. HYDROMORPHONE [Concomitant]
     Active Substance: HYDROMORPHONE
  7. METOCLOPRAMIDE [Concomitant]
     Active Substance: METOCLOPRAMIDE
  8. ONDANSETRON [Concomitant]
     Active Substance: ONDANSETRON
  9. PANTOPRAZOLE [Concomitant]
     Active Substance: PANTOPRAZOLE
  10. ZOPICLONE [Concomitant]
     Active Substance: ZOPICLONE
     Dosage: UNK

REACTIONS (4)
  - Dehydration [Recovered/Resolved]
  - Nausea [Recovered/Resolved]
  - Vomiting [Recovered/Resolved]
  - Overdose [Unknown]
